FAERS Safety Report 12413903 (Version 2)
Quarter: 2016Q2

REPORT INFORMATION
  Report Type: Spontaneous
  Country: AU (occurrence: AU)
  Receive Date: 20160527
  Receipt Date: 20160602
  Transmission Date: 20160815
  Serious: Yes (Other)
  Sender: FDA-Public Use
  Company Number: AU-009507513-1602AUS006529

PATIENT

DRUGS (1)
  1. EZETROL [Suspect]
     Active Substance: EZETIMIBE

REACTIONS (1)
  - Neoplasm malignant [Unknown]
